FAERS Safety Report 22060441 (Version 1)
Quarter: 2023Q1

REPORT INFORMATION
  Report Type: Report from Study
  Country: US (occurrence: US)
  Receive Date: 20230303
  Receipt Date: 20230303
  Transmission Date: 20230417
  Serious: Yes (Other)
  Sender: FDA-Public Use
  Company Number: US-BIOVITRUM-2023-GB-13455

PATIENT
  Age: 45 Year
  Sex: Female

DRUGS (4)
  1. KINERET [Suspect]
     Active Substance: ANAKINRA
     Indication: Rheumatoid arthritis
     Dates: start: 20190602
  2. KINERET [Suspect]
     Active Substance: ANAKINRA
     Indication: Osteoarthritis
     Dates: start: 20220729
  3. KINERET [Suspect]
     Active Substance: ANAKINRA
  4. KINERET [Suspect]
     Active Substance: ANAKINRA
     Route: 058
     Dates: start: 201905

REACTIONS (9)
  - Nephrolithiasis [Unknown]
  - Intentional product misuse [Unknown]
  - Nasal congestion [Unknown]
  - Rhinorrhoea [Unknown]
  - Off label use [Unknown]
  - Product dose omission issue [Unknown]
  - Illness [Unknown]
  - Urticaria [Unknown]
  - Injection site pain [Unknown]
